FAERS Safety Report 16235584 (Version 2)
Quarter: 2019Q2

REPORT INFORMATION
  Report Type: Spontaneous
  Country: FR (occurrence: FR)
  Receive Date: 20190424
  Receipt Date: 20190503
  Transmission Date: 20190711
  Serious: Yes (Hospitalization)
  Sender: FDA-Public Use
  Company Number: FR-SUN PHARMACEUTICAL INDUSTRIES LTD-2019RR-206145

PATIENT
  Age: 34 Year
  Sex: Female
  Weight: 65 kg

DRUGS (9)
  1. BOSENTAN. [Suspect]
     Active Substance: BOSENTAN
     Indication: PULMONARY ARTERIAL HYPERTENSION
     Dosage: 250 MILLIGRAM, DAILY
     Route: 048
     Dates: start: 20190129, end: 20190319
  2. ZYMAD [Concomitant]
     Active Substance: CHOLECALCIFEROL
     Indication: PRODUCT USED FOR UNKNOWN INDICATION
     Dosage: ()
     Route: 065
  3. TALMANCO [Suspect]
     Active Substance: TADALAFIL
     Indication: PULMONARY ARTERIAL HYPERTENSION
     Dosage: 40 MILLIGRAM, DAILY
     Route: 048
     Dates: start: 20190202, end: 20190319
  4. ENDOXAN [Suspect]
     Active Substance: CYCLOPHOSPHAMIDE
     Indication: SYSTEMIC LUPUS ERYTHEMATOSUS
     Dosage: 1125 MILLIGRAM, MONTHLY
     Route: 042
     Dates: start: 20190204, end: 20190305
  5. BACTRIM [Suspect]
     Active Substance: SULFAMETHOXAZOLE\TRIMETHOPRIM
     Indication: OPPORTUNISTIC INFECTION PROPHYLAXIS
     Dosage: 1 DOSAGE FORM, DAILY
     Route: 048
     Dates: start: 20190206, end: 20190319
  6. CORTANCYL [Concomitant]
     Active Substance: PREDNISONE
     Indication: PRODUCT USED FOR UNKNOWN INDICATION
     Dosage: ()
     Route: 065
  7. LANSOPRAZOLE. [Suspect]
     Active Substance: LANSOPRAZOLE
     Indication: PROPHYLAXIS AGAINST GASTROINTESTINAL ULCER
     Dosage: 15 MILLIGRAM, DAILY
     Route: 048
     Dates: start: 20190204
  8. AUGMENTIN [Suspect]
     Active Substance: AMOXICILLIN\CLAVULANATE POTASSIUM
     Indication: TOOTH AVULSION
     Dosage: 3 GRAM, DAILY
     Route: 048
     Dates: start: 20190218, end: 20190228
  9. DIFFU K [Concomitant]
     Active Substance: POTASSIUM CHLORIDE
     Indication: PRODUCT USED FOR UNKNOWN INDICATION
     Dosage: ()
     Route: 065

REACTIONS (1)
  - Stevens-Johnson syndrome [Recovered/Resolved]

NARRATIVE: CASE EVENT DATE: 20190315
